FAERS Safety Report 13040787 (Version 4)
Quarter: 2020Q2

REPORT INFORMATION
  Report Type: Report from Study
  Country: AU (occurrence: AU)
  Receive Date: 20161219
  Receipt Date: 20200515
  Transmission Date: 20200713
  Serious: No
  Sender: FDA-Public Use
  Company Number: AU-JNJFOC-20161026185

PATIENT
  Age: 8 Decade
  Sex: Female

DRUGS (1)
  1. STELARA [Suspect]
     Active Substance: USTEKINUMAB
     Indication: PSORIASIS
     Dosage: LAST DOSE WAS ADMINISTERED ON 31-DEC-2016
     Route: 058
     Dates: start: 20160711

REACTIONS (6)
  - Bone pain [Unknown]
  - Underdose [Unknown]
  - Nasopharyngitis [Unknown]
  - Throat irritation [Unknown]
  - Psoriasis [Unknown]
  - Influenza like illness [Recovering/Resolving]
